FAERS Safety Report 24578670 (Version 1)
Quarter: 2024Q4

REPORT INFORMATION
  Report Type: Spontaneous
  Country: CN (occurrence: CN)
  Receive Date: 20241105
  Receipt Date: 20241105
  Transmission Date: 20250115
  Serious: Yes (Other)
  Sender: SANDOZ
  Company Number: CN-SANDOZ-SDZ2024CN091615

PATIENT
  Age: 56 Year
  Sex: Female
  Weight: 62 kg

DRUGS (4)
  1. ZOLEDRONIC ACID [Suspect]
     Active Substance: ZOLEDRONIC ACID
     Indication: Thyroidectomy
     Dosage: 5.00 MG
     Route: 042
     Dates: start: 20241019, end: 20241019
  2. HYDROXYCHLOROQUINE SULFATE [Concomitant]
     Active Substance: HYDROXYCHLOROQUINE SULFATE
     Indication: Sjogren^s syndrome
     Dosage: 1 MG
     Route: 048
     Dates: start: 20241014, end: 20241025
  3. NIMESULIDE [Concomitant]
     Active Substance: NIMESULIDE
     Indication: Sjogren^s syndrome
     Dosage: 100 MG, BID
     Route: 048
     Dates: start: 20241019, end: 20241020
  4. TACROLIMUS [Concomitant]
     Active Substance: TACROLIMUS
     Indication: Sjogren^s syndrome
     Dosage: 0.100 MG
     Route: 048
     Dates: start: 20241014, end: 20241025

REACTIONS (1)
  - Platelet count decreased [Not Recovered/Not Resolved]

NARRATIVE: CASE EVENT DATE: 20241020
